FAERS Safety Report 13355421 (Version 1)
Quarter: 2017Q1

REPORT INFORMATION
  Report Type: Spontaneous
  Country: US (occurrence: US)
  Receive Date: 20170321
  Receipt Date: 20170321
  Transmission Date: 20170429
  Serious: Yes (Hospitalization, Other)
  Sender: FDA-Public Use
  Company Number: US-MYLANLABS-2017M1017218

PATIENT

DRUGS (8)
  1. KETAMINE [Suspect]
     Active Substance: KETAMINE
     Dosage: 0.4 MG/KG/H
     Route: 041
  2. KETAMINE [Suspect]
     Active Substance: KETAMINE
     Dosage: 0.3MG/KG/H
     Route: 041
  3. METHADONE [Suspect]
     Active Substance: METHADONE HYDROCHLORIDE
     Indication: ABDOMINAL PAIN
     Route: 048
  4. KETAMINE [Suspect]
     Active Substance: KETAMINE
     Indication: ABDOMINAL PAIN
     Dosage: 25MG
     Route: 040
  5. HYDROMORPHONE [Suspect]
     Active Substance: HYDROMORPHONE
     Indication: ABDOMINAL PAIN
     Route: 042
  6. HYDROMORPHONE [Suspect]
     Active Substance: HYDROMORPHONE
     Dosage: 50MG/H
     Route: 042
  7. HYDROMORPHONE [Suspect]
     Active Substance: HYDROMORPHONE
     Dosage: 25MG BOLUS
     Route: 040
  8. DEXAMETHASONE. [Concomitant]
     Active Substance: DEXAMETHASONE
     Indication: PRODUCT USED FOR UNKNOWN INDICATION
     Dosage: 6 MG EVERY 6 HOURS
     Route: 042

REACTIONS (6)
  - Central pain syndrome [Recovering/Resolving]
  - Sedation [Recovered/Resolved]
  - Hyperaesthesia [Recovering/Resolving]
  - Hallucination [Recovered/Resolved]
  - Delirium [Recovered/Resolved]
  - Somnolence [Recovered/Resolved]
